FAERS Safety Report 21536348 (Version 1)
Quarter: 2022Q4

REPORT INFORMATION
  Report Type: Report from Study
  Country: US (occurrence: US)
  Receive Date: 20221101
  Receipt Date: 20221101
  Transmission Date: 20230112
  Serious: Yes (Hospitalization)
  Sender: FDA-Public Use
  Company Number: US-BRISTOL-MYERS SQUIBB COMPANY-2022-129628

PATIENT
  Age: 65 Year
  Sex: Female
  Weight: 57.6 kg

DRUGS (2)
  1. IPILIMUMAB [Suspect]
     Active Substance: IPILIMUMAB
     Indication: Malignant melanoma
     Route: 042
     Dates: start: 20220518, end: 20220727
  2. NIVOLUMAB [Suspect]
     Active Substance: NIVOLUMAB
     Indication: Malignant melanoma
     Route: 042
     Dates: start: 20220518, end: 20220727

REACTIONS (3)
  - Gastritis [Recovered/Resolved]
  - Duodenitis [Recovered/Resolved]
  - Oesophageal mucosa erythema [Recovered/Resolved]

NARRATIVE: CASE EVENT DATE: 20220902
